FAERS Safety Report 6470552-9 (Version None)
Quarter: 2009Q4

REPORT INFORMATION
  Report Type: 
  Country: None (occurrence: None)
  Receive Date: 20091203
  Receipt Date: 20091125
  Transmission Date: 20100525
  Serious: Yes (Hospitalization, Other)
  Sender: FDA-Public Use
  Company Number: US-PFIZER INC-2009273596

PATIENT
  Sex: Female
  Weight: 63.492 kg

DRUGS (4)
  1. CHANTIX [Suspect]
     Indication: SMOKING CESSATION THERAPY
     Dosage: 1 MG, 2X/DAY
     Dates: start: 20090801, end: 20090915
  2. XOPENEX [Concomitant]
     Indication: BRONCHOSPASM
  3. XOPENEX [Concomitant]
     Indication: ASTHMA
  4. ALPRAZOLAM [Concomitant]
     Indication: ANXIETY
     Dosage: 0.125 UNK, AS NEEDED

REACTIONS (6)
  - ANGIOEDEMA [None]
  - BRONCHOSPASM [None]
  - DYSPNOEA [None]
  - HYPERSENSITIVITY [None]
  - PHARYNGEAL OEDEMA [None]
  - PULMONARY OEDEMA [None]
